FAERS Safety Report 22090582 (Version 1)
Quarter: 2023Q1

REPORT INFORMATION
  Report Type: Other
  Country: None (occurrence: SA)
  Receive Date: 20230313
  Receipt Date: 20230313
  Transmission Date: 20230417
  Serious: Yes (Hospitalization)
  Sender: FDA-Public Use
  Company Number: SA-B.Braun Medical Inc.-2139009

PATIENT
  Age: 4 Year
  Sex: Female

DRUGS (10)
  1. SODIUM CHLORIDE [Suspect]
     Active Substance: SODIUM CHLORIDE
     Indication: Septic shock
     Route: 040
  2. MYCOPHENOLATE MOFETIL [Concomitant]
     Active Substance: MYCOPHENOLATE MOFETIL
  3. PREDNISOLONE [Concomitant]
     Active Substance: PREDNISOLONE
  4. ENALAPRIL [Concomitant]
     Active Substance: ENALAPRIL
  5. RITUXIMAB [Concomitant]
     Active Substance: RITUXIMAB
  6. MEROPENEM [Suspect]
     Active Substance: MEROPENEM
  7. VANCOMYCIN [Suspect]
     Active Substance: VANCOMYCIN
  8. HYDROCORTISONE [Suspect]
     Active Substance: HYDROCORTISONE
  9. EPINEPHRINE [Suspect]
     Active Substance: EPINEPHRINE
  10. NOREPINEPHRINE [Suspect]
     Active Substance: NOREPINEPHRINE

REACTIONS (1)
  - Drug ineffective [Unknown]
